FAERS Safety Report 6056279-6 (Version None)
Quarter: 2009Q1

REPORT INFORMATION
  Report Type: 
  Country: None (occurrence: None)
  Receive Date: 20090126
  Receipt Date: 20090126
  Transmission Date: 20090719
  Serious: Yes (Life-Threatening, Disabling)
  Sender: FDA-Public Use
  Company Number: None

PATIENT
  Sex: Male
  Weight: 81.6475 kg

DRUGS (4)
  1. AMBIEN [Suspect]
     Indication: INSOMNIA
     Dosage: 12.5 MG NIGHTLY AS NEEDED
     Dates: start: 20081009, end: 20081218
  2. GEODON [Concomitant]
  3. LEXAPRO [Concomitant]
  4. LAMICTAL [Concomitant]

REACTIONS (7)
  - ABNORMAL SLEEP-RELATED EVENT [None]
  - AMNESIA [None]
  - DYSSTASIA [None]
  - ECONOMIC PROBLEM [None]
  - LEGAL PROBLEM [None]
  - ROAD TRAFFIC ACCIDENT [None]
  - SOMNAMBULISM [None]
